FAERS Safety Report 6734413-X (Version None)
Quarter: 2010Q2

REPORT INFORMATION
  Report Type: 
  Country: None (occurrence: None)
  Receive Date: 20100513
  Receipt Date: 20091126
  Transmission Date: 20101027
  Serious: Yes (Hospitalization)
  Sender: FDA-Public Use
  Company Number: 2009S1000535

PATIENT
  Age: 49 Year
  Sex: Female
  Weight: 92 kg

DRUGS (3)
  1. CUBICIN [Suspect]
     Indication: STAPHYLOCOCCAL ABSCESS
     Dosage: 7.4 MG/KG;Q24H;IV
     Route: 042
     Dates: start: 20091121, end: 20091122
  2. CUBICIN [Suspect]
     Indication: SUBCUTANEOUS ABSCESS
     Dosage: 7.4 MG/KG;Q24H;IV
     Route: 042
     Dates: start: 20091121, end: 20091122
  3. ZOCOR [Concomitant]

REACTIONS (1)
  - RHABDOMYOLYSIS [None]
